FAERS Safety Report 11700966 (Version 1)
Quarter: 2015Q4

REPORT INFORMATION
  Report Type: Report from Study
  Country: DE (occurrence: DE)
  Receive Date: 20151105
  Receipt Date: 20151105
  Transmission Date: 20160304
  Serious: Yes (Hospitalization, Other)
  Sender: FDA-Public Use
  Company Number: DE-ABBVIE-15K-062-1492074-00

PATIENT
  Sex: Male
  Weight: 95 kg

DRUGS (2)
  1. METEX [Concomitant]
     Active Substance: METFORMIN HYDROCHLORIDE
     Indication: RHEUMATOID ARTHRITIS
     Route: 058
     Dates: start: 2012
  2. HUMIRA [Suspect]
     Active Substance: ADALIMUMAB
     Indication: RHEUMATOID ARTHRITIS
     Route: 058
     Dates: start: 20150316, end: 20151005

REACTIONS (3)
  - Rheumatoid nodule [Unknown]
  - Drug effect decreased [Recovering/Resolving]
  - Hospitalisation [Unknown]

NARRATIVE: CASE EVENT DATE: 2015
